FAERS Safety Report 9286484 (Version 1)
Quarter: 2013Q2

REPORT INFORMATION
  Report Type: Spontaneous
  Country: US (occurrence: None)
  Receive Date: 20130510
  Receipt Date: 20130510
  Transmission Date: 20140414
  Serious: Yes (Hospitalization)
  Sender: FDA-Public Use
  Company Number: None

PATIENT
  Age: 80 Year
  Sex: Male
  Weight: 88.7 kg

DRUGS (3)
  1. COUMADIN [Suspect]
     Indication: ATRIAL FIBRILLATION
     Dosage: 5MG / 7.5MG 5XWEEK/EOD PO
  2. PLETAL [Suspect]
     Indication: INTERMITTENT CLAUDICATION
     Route: 048
  3. ASPIRIN [Suspect]
     Route: 048

REACTIONS (4)
  - Haemorrhagic anaemia [None]
  - Gastrointestinal haemorrhage [None]
  - Thrombocytopenia [None]
  - Occult blood positive [None]
